FAERS Safety Report 12539397 (Version 1)
Quarter: 2016Q3

REPORT INFORMATION
  Report Type: Report from Study
  Country: GR (occurrence: GR)
  Receive Date: 20160708
  Receipt Date: 20160708
  Transmission Date: 20161109
  Serious: Yes (Other)
  Sender: FDA-Public Use
  Company Number: PHHY2016GR092043

PATIENT
  Sex: Female

DRUGS (1)
  1. GILENYA [Suspect]
     Active Substance: FINGOLIMOD HYDROCHLORIDE
     Indication: MULTIPLE SCLEROSIS
     Dosage: UNK
     Route: 065
     Dates: start: 2011

REACTIONS (6)
  - Central nervous system lesion [Unknown]
  - Gait disturbance [Unknown]
  - Extrapyramidal disorder [Unknown]
  - Muscle spasticity [Unknown]
  - Psychomotor hyperactivity [Unknown]
  - Hypoaesthesia [Unknown]
